FAERS Safety Report 6974210-3 (Version None)
Quarter: 2010Q3

REPORT INFORMATION
  Report Type: 
  Country: None (occurrence: None)
  Receive Date: 20100909
  Receipt Date: 20080206
  Transmission Date: 20110219
  Serious: No
  Sender: FDA-Public Use
  Company Number: US-WYE-H02505208

PATIENT
  Sex: Male
  Weight: 102.15 kg

DRUGS (4)
  1. PROTONIX [Suspect]
     Indication: GASTROOESOPHAGEAL REFLUX DISEASE
     Route: 048
     Dates: start: 20080123
  2. PROTONIX [Suspect]
     Indication: ULCER
  3. ALLOPURINOL [Concomitant]
  4. CAPTOPRIL [Concomitant]

REACTIONS (6)
  - CONDITION AGGRAVATED [None]
  - GOUT [None]
  - INFLUENZA LIKE ILLNESS [None]
  - MIGRAINE [None]
  - MUSCULOSKELETAL STIFFNESS [None]
  - VISION BLURRED [None]
